FAERS Safety Report 8322882-3 (Version None)
Quarter: 2012Q2

REPORT INFORMATION
  Report Type: 
  Country: None (occurrence: None)
  Receive Date: 20120430
  Receipt Date: 20120425
  Transmission Date: 20120825
  Serious: Yes (Hospitalization, Other)
  Sender: FDA-Public Use
  Company Number: CHPA2012US009383

PATIENT
  Age: 46 Year
  Sex: Female

DRUGS (1)
  1. VOLTAREN [Suspect]
     Indication: ARTHRITIS
     Dosage: UNK, AS NEEDED
     Route: 061
     Dates: start: 20110101

REACTIONS (9)
  - PALPITATIONS [None]
  - SWELLING FACE [None]
  - EYE SWELLING [None]
  - THROMBOSIS [None]
  - CYANOSIS [None]
  - VASODILATATION [None]
  - CHOKING SENSATION [None]
  - OFF LABEL USE [None]
  - DRUG ADMINISTERED AT INAPPROPRIATE SITE [None]
